FAERS Safety Report 17893592 (Version 1)
Quarter: 2020Q2

REPORT INFORMATION
  Report Type: Spontaneous
  Country: FR (occurrence: FR)
  Receive Date: 20200615
  Receipt Date: 20200615
  Transmission Date: 20200714
  Serious: Yes (Other)
  Sender: FDA-Public Use
  Company Number: FR-CADILA HEALTHCARE LIMITED-FR-ZYDUS-032484

PATIENT

DRUGS (7)
  1. LEVETIRACETAM. [Concomitant]
     Active Substance: LEVETIRACETAM
     Indication: EPILEPSY
     Dosage: 450 MILLIGRAM,(INTERVAL :.5 DAYS)
     Route: 065
     Dates: start: 2008
  2. LEVETIRACETAM. [Concomitant]
     Active Substance: LEVETIRACETAM
     Indication: EPILEPSY
     Dosage: 450 MILLIGRAM,(INTERVAL :.5 DAYS)
     Route: 065
     Dates: start: 2008
  3. LEVETIRACETAM. [Concomitant]
     Active Substance: LEVETIRACETAM
     Indication: EPILEPSY
     Dosage: 900 MILLIGRAM,(INTERVAL :.5 DAYS)
     Route: 065
     Dates: start: 201509
  4. TOPIRAMATE. [Concomitant]
     Active Substance: TOPIRAMATE
     Indication: EPILEPSY
     Dosage: 50 MILLIGRAM,(INTERVAL :1 DAYS)
     Route: 065
     Dates: start: 201509
  5. ARIPIPRAZOLE. [Suspect]
     Active Substance: ARIPIPRAZOLE
     Indication: AGGRESSION
     Dosage: 5 MILLIGRAM/KILOGRAM,(INTERVAL :1 DAYS)
     Route: 065
     Dates: start: 201509, end: 201601
  6. TOPIRAMATE. [Concomitant]
     Active Substance: TOPIRAMATE
     Indication: EPILEPSY
     Dosage: 50 MILLIGRAM,(INTERVAL :1 DAYS)
     Route: 065
     Dates: start: 201509
  7. LEVETIRACETAM. [Concomitant]
     Active Substance: LEVETIRACETAM
     Indication: EPILEPSY
     Dosage: 900 MILLIGRAM,(INTERVAL :.5 DAYS)
     Route: 065
     Dates: start: 201509

REACTIONS (3)
  - Dysuria [Recovered/Resolved]
  - Urinary retention [Recovered/Resolved]
  - Somnolence [Unknown]
